FAERS Safety Report 14974524 (Version 1)
Quarter: 2018Q2

REPORT INFORMATION
  Report Type: Spontaneous
  Country: US (occurrence: US)
  Receive Date: 20180514
  Receipt Date: 20180514
  Transmission Date: 20180711
  Serious: Yes (Other)
  Sender: FDA-Public Use
  Company Number: None

PATIENT
  Age: 51 Year
  Sex: Male

DRUGS (12)
  1. PERFOROMIST [Concomitant]
     Active Substance: FORMOTEROL FUMARATE DIHYDRATE
  2. COMBIVENT [Concomitant]
     Active Substance: ALBUTEROL SULFATE\IPRATROPIUM BROMIDE
  3. FENTANYL. [Concomitant]
     Active Substance: FENTANYL
  4. GENVOYA [Suspect]
     Active Substance: COBICISTAT\ELVITEGRAVIR\EMTRICITABINE\TENOFOVIR ALAFENAMIDE FUMARATE
     Indication: HEPATITIS B
     Route: 048
     Dates: start: 20161111
  5. GABAPENTIN. [Concomitant]
     Active Substance: GABAPENTIN
  6. NORCO [Concomitant]
     Active Substance: ACETAMINOPHEN\HYDROCODONE BITARTRATE
  7. EPIPEN [Concomitant]
     Active Substance: EPINEPHRINE
  8. HYDROXYZINE [Concomitant]
     Active Substance: HYDROXYZINE HYDROCHLORIDE
  9. LOTRISONE [Concomitant]
     Active Substance: BETAMETHASONE DIPROPIONATE\CLOTRIMAZOLE
  10. RIBASPHERE [Concomitant]
     Active Substance: RIBAVIRIN
  11. FUROSEMIDE. [Concomitant]
     Active Substance: FUROSEMIDE
  12. LAMITRIGINE [Concomitant]
     Active Substance: LAMOTRIGINE

REACTIONS (1)
  - Hepatic cancer [None]

NARRATIVE: CASE EVENT DATE: 20180511
